FAERS Safety Report 18087172 (Version 1)
Quarter: 2020Q3

REPORT INFORMATION
  Report Type: Spontaneous
  Country: US (occurrence: US)
  Receive Date: 20200729
  Receipt Date: 20200729
  Transmission Date: 20201103
  Serious: No
  Sender: FDA-Public Use
  Company Number: US-STRIDES ARCOLAB LIMITED-2020SP004762

PATIENT
  Age: 89 Year
  Sex: Male

DRUGS (11)
  1. MYCOPHENOLATE MOFETIL. [Suspect]
     Active Substance: MYCOPHENOLATE MOFETIL
     Indication: PEMPHIGOID
     Dosage: 1000 MILLIGRAM, BID (PEAK OF 1500MG TWICE DAILY)
     Route: 065
  2. NICOTINAMIDE [Concomitant]
     Active Substance: NIACINAMIDE
     Indication: SKIN PLAQUE
  3. OMALIZUMAB. [Concomitant]
     Active Substance: OMALIZUMAB
     Indication: PEMPHIGOID
     Dosage: UNK, CORTICOSTEROID SPARING AGENT, DISEASE FLARED 6 MONTHS AND THUS DISCONTINUED
     Route: 065
  4. DOXYCYCLINE. [Concomitant]
     Active Substance: DOXYCYCLINE
     Indication: SKIN PLAQUE
     Dosage: 100 MILLIGRAM, BID
     Route: 065
  5. PREDNISOLONE. [Suspect]
     Active Substance: PREDNISOLONE
     Dosage: UNK, DOSE DECREASED
     Route: 065
  6. CLOBETASOL [Concomitant]
     Active Substance: CLOBETASOL
     Indication: PRODUCT USED FOR UNKNOWN INDICATION
     Dosage: UNK
     Route: 065
  7. PREDNISOLONE. [Suspect]
     Active Substance: PREDNISOLONE
     Indication: PEMPHIGOID
     Dosage: 10 MILLIGRAM DAILY
     Route: 065
  8. PREDNISOLONE. [Suspect]
     Active Substance: PREDNISOLONE
     Dosage: 2.5 MILLIGRAM DAILY
     Route: 065
  9. METFORMIN [Concomitant]
     Active Substance: METFORMIN HYDROCHLORIDE
     Indication: TYPE 2 DIABETES MELLITUS
     Dosage: UNK
     Route: 065
  10. NICOTINAMIDE [Concomitant]
     Active Substance: NIACINAMIDE
     Indication: BLISTER
     Dosage: 500 MILLIGRAM, BID
     Route: 065
  11. DOXYCYCLINE. [Concomitant]
     Active Substance: DOXYCYCLINE
     Indication: BLISTER

REACTIONS (2)
  - Myopathy [Unknown]
  - Off label use [Unknown]
